FAERS Safety Report 10913926 (Version 1)
Quarter: 2015Q1

REPORT INFORMATION
  Report Type: Report from Study
  Country: GB (occurrence: GB)
  Receive Date: 20150313
  Receipt Date: 20150313
  Transmission Date: 20150721
  Serious: Yes (Other)
  Sender: FDA-Public Use
  Company Number: PHFR2015GB002006

PATIENT
  Age: 51 Year

DRUGS (1)
  1. LETROZOLE. [Suspect]
     Active Substance: LETROZOLE
     Indication: BREAST CANCER METASTATIC
     Route: 065

REACTIONS (6)
  - Cardiovascular disorder [Unknown]
  - Liver disorder [Unknown]
  - Fatigue [Unknown]
  - Weight decreased [Unknown]
  - Pain [Unknown]
  - Decreased appetite [Unknown]
